FAERS Safety Report 25438529 (Version 1)
Quarter: 2025Q2

REPORT INFORMATION
  Report Type: Spontaneous
  Country: US (occurrence: US)
  Receive Date: 20250616
  Receipt Date: 20250616
  Transmission Date: 20250717
  Serious: Yes (Hospitalization, Other)
  Sender: BRISTOL-MYERS SQUIBB COMPANY
  Company Number: US-BRISTOL-MYERS SQUIBB COMPANY-2025-083319

PATIENT
  Age: 83 Year
  Sex: Female

DRUGS (1)
  1. POMALYST [Suspect]
     Active Substance: POMALIDOMIDE
     Indication: Plasma cell leukaemia
     Dosage: FREQUENCY: TAKE 1 CAPSULE BY MOUTH EVERY MORNING BEFORE BREAKFAST FOR 14 DAYS ON THEN 7 DAYS OFF
     Route: 048
     Dates: start: 202406

REACTIONS (3)
  - Sepsis [Unknown]
  - Pneumonia [Unknown]
  - Off label use [Unknown]
